FAERS Safety Report 20216998 (Version 1)
Quarter: 2021Q4

REPORT INFORMATION
  Report Type: Report from Study
  Country: DE (occurrence: DE)
  Receive Date: 20211222
  Receipt Date: 20211222
  Transmission Date: 20220303
  Serious: Yes (Hospitalization)
  Sender: FDA-Public Use
  Company Number: DE-SA-2020SA317342

PATIENT
  Age: 75 Year
  Sex: Male
  Weight: 76 kg

DRUGS (14)
  1. AFLIBERCEPT [Suspect]
     Active Substance: AFLIBERCEPT
     Indication: Colorectal cancer metastatic
     Dosage: 288 MG, QCY
     Route: 042
     Dates: start: 20190605, end: 20190605
  2. AFLIBERCEPT [Suspect]
     Active Substance: AFLIBERCEPT
     Indication: Colorectal cancer metastatic
     Dosage: 288 MG, QCY
     Route: 042
     Dates: start: 20190605, end: 20190605
  3. INVESTIGATIONAL PRODUCT [Suspect]
     Active Substance: INVESTIGATIONAL PRODUCT
     Indication: Colorectal cancer metastatic
     Dosage: 288 MG, QCY
     Route: 042
     Dates: start: 20190605, end: 20190605
  4. PLACEBO [Suspect]
     Active Substance: UNSPECIFIED INGREDIENT
     Indication: Colorectal cancer metastatic
     Dosage: 288 MG, QCY
     Route: 042
     Dates: start: 20190605, end: 20190605
  5. AFLIBERCEPT [Suspect]
     Active Substance: AFLIBERCEPT
     Dosage: 288 MG, QCY
     Route: 042
     Dates: start: 20190807, end: 20190807
  6. AFLIBERCEPT [Suspect]
     Active Substance: AFLIBERCEPT
     Dosage: 288 MG, QCY
     Route: 042
     Dates: start: 20190807, end: 20190807
  7. INVESTIGATIONAL PRODUCT [Suspect]
     Active Substance: INVESTIGATIONAL PRODUCT
     Dosage: 288 MG, QCY
     Route: 042
     Dates: start: 20190807, end: 20190807
  8. PLACEBO [Suspect]
     Active Substance: UNSPECIFIED INGREDIENT
     Dosage: 288 MG, QCY
     Route: 042
     Dates: start: 20190807, end: 20190807
  9. OXALIPLATIN [Suspect]
     Active Substance: OXALIPLATIN
     Indication: Colorectal cancer metastatic
     Dosage: 158 MG, QCY
     Route: 042
     Dates: start: 20190605, end: 20190605
  10. OXALIPLATIN [Suspect]
     Active Substance: OXALIPLATIN
     Dosage: 158 MG, QCY
     Route: 042
     Dates: start: 20190821, end: 20190821
  11. FLUOROURACIL [Suspect]
     Active Substance: FLUOROURACIL
     Indication: Colorectal cancer metastatic
     Dosage: 5208 MG, QCY
     Route: 042
     Dates: start: 20190605, end: 20190605
  12. FLUOROURACIL [Suspect]
     Active Substance: FLUOROURACIL
     Dosage: 5208 MG, QCY
     Route: 042
     Dates: start: 20190821, end: 20190821
  13. LEUCOVORIN [Suspect]
     Active Substance: LEUCOVORIN
     Indication: Colorectal cancer metastatic
     Dosage: 651 MG, QCY
     Route: 042
     Dates: start: 20190605, end: 20190605
  14. LEUCOVORIN [Suspect]
     Active Substance: LEUCOVORIN
     Dosage: 65 MG, QCY
     Route: 042
     Dates: start: 20190821, end: 20190821

REACTIONS (1)
  - Gastrointestinal anastomotic leak [Recovered/Resolved]

NARRATIVE: CASE EVENT DATE: 20191017
